FAERS Safety Report 7371371-1 (Version None)
Quarter: 2011Q1

REPORT INFORMATION
  Report Type: 
  Country: None (occurrence: None)
  Receive Date: 20110324
  Receipt Date: 20110318
  Transmission Date: 20110831
  Serious: Yes (Death, Other)
  Sender: FDA-Public Use
  Company Number: ES-ELI_LILLY_AND_COMPANY-ES201102006997

PATIENT
  Sex: Female

DRUGS (1)
  1. ALIMTA [Suspect]
     Dosage: UNK, UNKNOWN

REACTIONS (3)
  - ENCEPHALOPATHY [None]
  - CEREBROVASCULAR ACCIDENT [None]
  - ENZYME ABNORMALITY [None]
